FAERS Safety Report 9206316 (Version 2)
Quarter: 2013Q4

REPORT INFORMATION
  Report Type: Report from Study
  Country: PT (occurrence: PT)
  Receive Date: 20130403
  Receipt Date: 20131218
  Transmission Date: 20140711
  Serious: Yes (Other)
  Sender: FDA-Public Use
  Company Number: PHHY2013PT030632

PATIENT
  Age: 32 Year
  Sex: Female

DRUGS (5)
  1. EXTAVIA [Suspect]
     Indication: MULTIPLE SCLEROSIS
     Dosage: 250 UG/ML, QOD
     Route: 058
     Dates: start: 20120720
  2. GABAPENTINA [Concomitant]
     Dosage: UNK UKN, UNK
  3. EUTIROX [Concomitant]
     Dosage: UNK UKN, UNK
  4. DIAZEPAM [Suspect]
     Dosage: 5 MG, QHS
  5. DIAZEPAM [Suspect]
     Dosage: 1 DF, TID
     Route: 048
     Dates: start: 20130325

REACTIONS (3)
  - Hemiparesis [Recovering/Resolving]
  - Paraesthesia [Recovered/Resolved]
  - Chest pain [Recovering/Resolving]
